FAERS Safety Report 10006502 (Version 2)
Quarter: 2014Q1

REPORT INFORMATION
  Report Type: Spontaneous
  Country: CN (occurrence: CN)
  Receive Date: 20140313
  Receipt Date: 20140331
  Transmission Date: 20141002
  Serious: Yes (Other)
  Sender: FDA-Public Use
  Company Number: CN-SA-2014SA028107

PATIENT
  Age: 57 Year
  Sex: Female
  Weight: 65 kg

DRUGS (3)
  1. COAPROVEL [Suspect]
     Indication: HYPERTENSION
     Route: 048
     Dates: start: 2011
  2. PLENDIL [Concomitant]
     Indication: HYPERTENSION
     Route: 048
     Dates: start: 2011
  3. EUTHYROX [Concomitant]
     Indication: HYPERTHYROIDISM
     Dosage: ABOUT 7 OR 8 YEARS AGO
     Route: 048

REACTIONS (2)
  - Nephrolithiasis [Not Recovered/Not Resolved]
  - Gout [Not Recovered/Not Resolved]
